FAERS Safety Report 10950784 (Version 3)
Quarter: 2015Q2

REPORT INFORMATION
  Report Type: Spontaneous
  Country: JP (occurrence: JP)
  Receive Date: 20150324
  Receipt Date: 20150514
  Transmission Date: 20150821
  Serious: Yes (Hospitalization, Other)
  Sender: FDA-Public Use
  Company Number: JP-PFIZER INC-2015097630

PATIENT
  Age: 77 Year
  Sex: Female
  Weight: 51 kg

DRUGS (15)
  1. GASTER [Concomitant]
     Active Substance: FAMOTIDINE
  2. EPADEL-S [Concomitant]
     Active Substance: ETHYL ICOSAPENTATE\ICOSAPENT
  3. CELECOX [Concomitant]
     Active Substance: CELECOXIB
  4. MUCOSTA [Concomitant]
     Active Substance: REBAMIPIDE
  5. CRESTOR [Concomitant]
     Active Substance: ROSUVASTATIN CALCIUM
  6. MAINTATE [Concomitant]
     Active Substance: BISOPROLOL FUMARATE
  7. LYRICA [Suspect]
     Active Substance: PREGABALIN
     Dosage: 25 MG, 2X/DAY
     Route: 048
     Dates: start: 20150127, end: 20150202
  8. NEXIUM [Suspect]
     Active Substance: ESOMEPRAZOLE MAGNESIUM
     Dosage: 20 MG, 1X/DAY
  9. LOXONIN [Suspect]
     Active Substance: LOXOPROFEN SODIUM
     Dosage: 60 MG, AS NEEDED
  10. VITAMINS NOS [Concomitant]
     Active Substance: VITAMINS
  11. AZILVA [Concomitant]
     Active Substance: AZILSARTAN KAMEDOXOMIL
  12. WASSER V [Concomitant]
  13. TALION /01587402/ [Suspect]
     Active Substance: BEPOTASTINE
     Dosage: 10 MG, 2X/DAY
  14. PLETAAL [Concomitant]
     Active Substance: CILOSTAZOL
  15. MERISLON [Concomitant]
     Active Substance: BETAHISTINE MESILATE

REACTIONS (3)
  - Nausea [Unknown]
  - Hepatic function abnormal [Recovered/Resolved]
  - Vomiting [Unknown]

NARRATIVE: CASE EVENT DATE: 20150202
